FAERS Safety Report 21889625 (Version 2)
Quarter: 2025Q4

REPORT INFORMATION
  Report Type: Report from Study
  Country: US (occurrence: US)
  Receive Date: 20230120
  Receipt Date: 20251024
  Transmission Date: 20260118
  Serious: Yes (Hospitalization)
  Sender: ROCHE
  Company Number: US-ROCHE-3265171

PATIENT
  Age: 66 Year
  Sex: Female

DRUGS (3)
  1. ENSPRYNG [Suspect]
     Active Substance: SATRALIZUMAB-MWGE
     Indication: Neuromyelitis optica spectrum disorder
     Dosage: INJECT 120MG SUBCUTANEOUSLY EVERY MONTH?SYRINGE
     Route: 058
  2. ENSPRYNG [Suspect]
     Active Substance: SATRALIZUMAB-MWGE
     Indication: Demyelination
     Route: 058
  3. ENSPRYNG [Suspect]
     Active Substance: SATRALIZUMAB-MWGE

REACTIONS (3)
  - Neuromyelitis optica spectrum disorder [Unknown]
  - Muscular weakness [Unknown]
  - Blood pressure measurement [Unknown]
